FAERS Safety Report 12595546 (Version 2)
Quarter: 2016Q3

REPORT INFORMATION
  Report Type: Spontaneous
  Country: AR (occurrence: AR)
  Receive Date: 20160727
  Receipt Date: 20160831
  Transmission Date: 20161109
  Serious: Yes (Hospitalization)
  Sender: FDA-Public Use
  Company Number: AR-ROCHE-1800469

PATIENT
  Age: 47 Year
  Sex: Female

DRUGS (5)
  1. CYCLOPHOSPHAMIDE. [Concomitant]
     Active Substance: CYCLOPHOSPHAMIDE
     Dosage: 600 MG/M2 X 1CYCLE
     Route: 065
  2. PACLITAXEL. [Concomitant]
     Active Substance: PACLITAXEL
     Indication: BREAST CANCER
     Dosage: SECOND CYCLE
     Route: 065
     Dates: start: 201206
  3. PAMIDRONATE [Concomitant]
     Active Substance: PAMIDRONATE DISODIUM
     Indication: BREAST CANCER
     Route: 065
     Dates: start: 2013
  4. HERCEPTIN [Suspect]
     Active Substance: TRASTUZUMAB
     Indication: BREAST CANCER
     Route: 065
     Dates: start: 201207
  5. DOXORUBICIN [Concomitant]
     Active Substance: DOXORUBICIN
     Dosage: 60 MG / M2
     Route: 065

REACTIONS (8)
  - Headache [Unknown]
  - Central nervous system lesion [Unknown]
  - Ill-defined disorder [Unknown]
  - Vomiting [Unknown]
  - Hydrocephalus [Unknown]
  - Brain oedema [Unknown]
  - Neurotoxicity [Unknown]
  - Intracranial mass [Unknown]

NARRATIVE: CASE EVENT DATE: 201411
